FAERS Safety Report 11877325 (Version 2)
Quarter: 2016Q1

REPORT INFORMATION
  Report Type: Spontaneous
  Country: US (occurrence: US)
  Receive Date: 20151229
  Receipt Date: 20160113
  Transmission Date: 20160526
  Serious: Yes (Death, Hospitalization)
  Sender: FDA-Public Use
  Company Number: US-PFIZER INC-2015453174

PATIENT
  Age: 63 Year
  Sex: Male
  Weight: 117 kg

DRUGS (1)
  1. TORISEL [Suspect]
     Active Substance: TEMSIROLIMUS
     Indication: RENAL CELL CARCINOMA
     Dosage: 25 MG IV ONCE IN A WEEK
     Route: 042
     Dates: start: 20150515, end: 20151029

REACTIONS (3)
  - Dyspnoea exertional [Unknown]
  - Renal cell carcinoma [Fatal]
  - Disease progression [Fatal]

NARRATIVE: CASE EVENT DATE: 2015
